FAERS Safety Report 13168404 (Version 1)
Quarter: 2017Q1

REPORT INFORMATION
  Report Type: Report from Study
  Country: DE (occurrence: DE)
  Receive Date: 20170131
  Receipt Date: 20170131
  Transmission Date: 20170428
  Serious: Yes (Death, Hospitalization, Other)
  Sender: FDA-Public Use
  Company Number: DE-GILEAD-2015-0132909

PATIENT
  Age: 72 Year
  Sex: Female
  Weight: 63 kg

DRUGS (14)
  1. SOFOSBUVIR [Suspect]
     Active Substance: SOFOSBUVIR
     Indication: CHRONIC HEPATITIS C
     Dosage: 400 MG, QD
     Route: 048
     Dates: start: 20140515, end: 20140901
  2. CHOP [Concomitant]
     Active Substance: CYCLOPHOSPHAMIDE\DOXORUBICIN\PREDNISONE\VINCRISTINE
  3. TORASEMID [Concomitant]
     Active Substance: TORSEMIDE
  4. MIRTAZEPINE TEVA [Concomitant]
     Active Substance: MIRTAZAPINE
  5. CLEXANE [Concomitant]
     Active Substance: ENOXAPARIN SODIUM
  6. HCT [Concomitant]
     Active Substance: HYDROCHLOROTHIAZIDE
  7. RITUXIMAB [Concomitant]
     Active Substance: RITUXIMAB
  8. HUMALOG MIX [Concomitant]
     Active Substance: INSULIN LISPRO
  9. L-THYROXIN [Concomitant]
     Active Substance: LEVOTHYROXINE SODIUM
     Dosage: 125 MG, UNK
  10. INSULIN [Concomitant]
     Active Substance: INSULIN NOS
  11. BISOPROLOL [Concomitant]
     Active Substance: BISOPROLOL
  12. RIBAVIRIN. [Suspect]
     Active Substance: RIBAVIRIN
     Indication: CHRONIC HEPATITIS C
     Dosage: UNK
     Route: 048
     Dates: start: 20140515, end: 20140608
  13. SIMEPREVIR [Suspect]
     Active Substance: SIMEPREVIR
     Indication: CHRONIC HEPATITIS C
     Dosage: 150 MG, QD
     Route: 048
     Dates: start: 20140608, end: 20140901
  14. APROVEL [Concomitant]
     Active Substance: IRBESARTAN

REACTIONS (3)
  - Death [Fatal]
  - Febrile neutropenia [Recovered/Resolved]
  - Fatigue [Unknown]

NARRATIVE: CASE EVENT DATE: 20140801
